FAERS Safety Report 8595639-6 (Version None)
Quarter: 2012Q3

REPORT INFORMATION
  Report Type: 
  Country: None (occurrence: None)
  Receive Date: 20120815
  Receipt Date: 20120806
  Transmission Date: 20120928
  Serious: No
  Sender: FDA-Public Use
  Company Number: US-ASTRAZENECA-2012SE53104

PATIENT
  Age: 59 Year
  Sex: Female
  Weight: 58.1 kg

DRUGS (2)
  1. NEXIUM [Suspect]
     Indication: GASTROOESOPHAGEAL REFLUX DISEASE
     Route: 048
     Dates: start: 20120721
  2. DEXILANT [Concomitant]

REACTIONS (4)
  - HEADACHE [None]
  - GASTROINTESTINAL DISORDER [None]
  - DIARRHOEA [None]
  - NAUSEA [None]
